FAERS Safety Report 5346808-X (Version None)
Quarter: 2007Q2

REPORT INFORMATION
  Report Type: 
  Country: None (occurrence: None)
  Receive Date: 20070604
  Receipt Date: 20070518
  Transmission Date: 20071010
  Serious: Yes (Hospitalization)
  Sender: FDA-Public Use
  Company Number: 2007RR-07736

PATIENT
  Age: 71 Year
  Sex: Male

DRUGS (7)
  1. LISINOPRIL [Suspect]
     Indication: HYPERTENSION
     Dosage: 20 MG, QD, ORAL
     Route: 048
     Dates: end: 20070501
  2. MELOXICAM [Suspect]
     Dosage: 7.5 MG, QD, ORAL
     Route: 048
     Dates: end: 20070501
  3. ALLOPURINOL [Concomitant]
  4. COSOPT [Concomitant]
  5. LANSOPRAZOLE [Concomitant]
  6. LERCANIDIPINE [Concomitant]
  7. CO-PHENOTROPE [Concomitant]

REACTIONS (6)
  - DEHYDRATION [None]
  - DIARRHOEA [None]
  - DIZZINESS [None]
  - METABOLIC ACIDOSIS [None]
  - RENAL FAILURE ACUTE [None]
  - RENAL IMPAIRMENT [None]
